FAERS Safety Report 9523469 (Version 1)
Quarter: 2013Q3

REPORT INFORMATION
  Report Type: Spontaneous
  Country: GB (occurrence: GB)
  Receive Date: 20130913
  Receipt Date: 20130913
  Transmission Date: 20140515
  Serious: Yes (Death)
  Sender: FDA-Public Use
  Company Number: PHHY2013GB099418

PATIENT
  Age: 84 Year
  Sex: Female

DRUGS (10)
  1. RISPERIDONE [Suspect]
     Dosage: 500 UG, BID
     Route: 048
     Dates: start: 20120831, end: 20130812
  2. NITROFURANTOIN [Concomitant]
     Indication: URINARY TRACT INFECTION
     Dates: start: 20130814
  3. ATORVASTATIN [Concomitant]
  4. ACIDEX [Concomitant]
     Indication: MYOCARDIAL INFARCTION
     Dates: start: 20111105
  5. FUROSEMIDE [Concomitant]
     Indication: MYOCARDIAL INFARCTION
     Dates: start: 20111105
  6. ASPIRIN [Concomitant]
     Indication: MYOCARDIAL INFARCTION
     Dates: start: 20111105
  7. RANITIDINE [Concomitant]
     Indication: MYOCARDIAL INFARCTION
     Dates: start: 20111105
  8. TRAZODONE [Concomitant]
     Indication: DEPRESSION
     Dates: start: 20121001
  9. BISOPROLOL [Concomitant]
     Indication: MYOCARDIAL INFARCTION
     Dates: start: 20111105
  10. CANDESARTAN [Concomitant]
     Indication: MYOCARDIAL INFARCTION
     Dates: start: 20111105

REACTIONS (1)
  - Convulsion [Fatal]
